FAERS Safety Report 6985393-3 (Version None)
Quarter: 2010Q3

REPORT INFORMATION
  Report Type: 
  Country: None (occurrence: None)
  Receive Date: 20100915
  Receipt Date: 20100903
  Transmission Date: 20110219
  Serious: Yes (Life-Threatening)
  Sender: FDA-Public Use
  Company Number: FR-PFIZER INC-2010111529

PATIENT
  Age: 57 Year
  Sex: Female

DRUGS (3)
  1. FARMORUBICINE [Suspect]
     Indication: BREAST CANCER IN SITU
     Dosage: 1 DF, SINGLE
     Route: 042
     Dates: start: 20100804, end: 20100804
  2. ENDOXAN [Suspect]
     Indication: BREAST CANCER IN SITU
     Dosage: 1 DF, SINGLE (500 MG/M2)
     Route: 042
     Dates: start: 20100804, end: 20100804
  3. FOLINIC ACID [Concomitant]
     Indication: BREAST CANCER IN SITU
     Dosage: UNK
     Dates: start: 20100804

REACTIONS (1)
  - HYPONATRAEMIA [None]
